FAERS Safety Report 13493804 (Version 3)
Quarter: 2017Q2

REPORT INFORMATION
  Report Type: Report from Study
  Country: DE (occurrence: DE)
  Receive Date: 20170427
  Receipt Date: 20170619
  Transmission Date: 20170830
  Serious: Yes (Hospitalization)
  Sender: FDA-Public Use
  Company Number: DE-GILEAD-2017-0269563

PATIENT
  Sex: Female
  Weight: 75 kg

DRUGS (14)
  1. IDELALISIB [Suspect]
     Active Substance: IDELALISIB
     Indication: PRODUCT USED FOR UNKNOWN INDICATION
     Dosage: 300 MG, QD
     Route: 048
     Dates: start: 20161212
  2. RITUXIMAB [Concomitant]
     Active Substance: RITUXIMAB
     Dosage: UNK
     Dates: start: 20170306, end: 20170306
  3. RITUXIMAB [Concomitant]
     Active Substance: RITUXIMAB
     Indication: CHRONIC LYMPHOCYTIC LEUKAEMIA
     Dosage: UNK
     Dates: start: 20161212, end: 20161212
  4. RITUXIMAB [Concomitant]
     Active Substance: RITUXIMAB
     Dosage: UNK
     Dates: start: 20170123, end: 20170123
  5. RITUXIMAB [Concomitant]
     Active Substance: RITUXIMAB
     Dosage: UNK
     Dates: start: 20161227, end: 20161227
  6. PARACETAMOL [Concomitant]
     Active Substance: ACETAMINOPHEN
     Dosage: UNK
     Dates: start: 20161212
  7. RITUXIMAB [Concomitant]
     Active Substance: RITUXIMAB
     Dosage: UNK
     Dates: start: 20170503, end: 20170503
  8. RITUXIMAB [Concomitant]
     Active Substance: RITUXIMAB
     Dosage: UNK
     Dates: start: 20170403, end: 20170403
  9. RANITIDIN [Concomitant]
     Active Substance: RANITIDINE HYDROCHLORIDE
     Dosage: UNK
     Dates: start: 20161212
  10. RITUXIMAB [Concomitant]
     Active Substance: RITUXIMAB
     Dosage: UNK
     Dates: start: 20170109, end: 20170109
  11. RITUXIMAB [Concomitant]
     Active Substance: RITUXIMAB
     Dosage: UNK
     Dates: start: 20170206, end: 20170206
  12. CLEMASTIN [Concomitant]
     Active Substance: CLEMASTINE
     Dosage: UNK
     Dates: start: 20161212
  13. SOLU DECORTIN H [Concomitant]
     Active Substance: PREDNISOLONE SODIUM SUCCINATE
     Dosage: UNK
     Dates: start: 20161212
  14. COTRIM [Concomitant]
     Active Substance: SULFAMETHOXAZOLE\TRIMETHOPRIM
     Dosage: UNK
     Dates: start: 20161212

REACTIONS (3)
  - Chills [Recovered/Resolved]
  - Pyrexia [Recovered/Resolved]
  - Unevaluable event [Recovered/Resolved]

NARRATIVE: CASE EVENT DATE: 20170421
